FAERS Safety Report 12315186 (Version 1)
Quarter: 2016Q2

REPORT INFORMATION
  Report Type: Report from Study
  Country: ES (occurrence: ES)
  Receive Date: 20160428
  Receipt Date: 20160428
  Transmission Date: 20160815
  Serious: Yes (Death, Hospitalization)
  Sender: FDA-Public Use
  Company Number: ES-ROCHE-1745384

PATIENT
  Age: 53 Year
  Sex: Male

DRUGS (9)
  1. MORPHINE [Concomitant]
     Active Substance: MORPHINE
     Dosage: 2-3 TIMES DAILY
     Route: 065
  2. LORAZEPAM. [Concomitant]
     Active Substance: LORAZEPAM
     Indication: DEPRESSION
     Dosage: 1-1/2-1
     Route: 065
  3. MORPHINE SUSTAINED RELEASE [Concomitant]
     Route: 065
  4. OMEPRAZOLE. [Concomitant]
     Active Substance: OMEPRAZOLE
     Route: 065
  5. SEPTRIN [Concomitant]
     Active Substance: SULFAMETHOXAZOLE\TRIMETHOPRIM
     Dosage: DOSE: 160/800 UNIT NOT REPORTED?MONDAY, WEDNSEDAY AND FRIDAY
     Route: 065
  6. VEMURAFENIB [Suspect]
     Active Substance: VEMURAFENIB
     Dosage: FROM D1 TO DAY28
     Route: 048
     Dates: start: 20151203
  7. COBIMETINIB [Suspect]
     Active Substance: COBIMETINIB
     Indication: MALIGNANT MELANOMA STAGE IV
     Dosage: FROM DAY 1 TO DAY 21
     Route: 048
     Dates: start: 20151203, end: 20160125
  8. PAROXETIN [Concomitant]
     Active Substance: PAROXETINE HYDROCHLORIDE
     Indication: DEPRESSION
     Dosage: AT MORNING
     Route: 065
  9. VEMURAFENIB [Suspect]
     Active Substance: VEMURAFENIB
     Indication: MALIGNANT MELANOMA STAGE IV
     Route: 065
     Dates: start: 20150724

REACTIONS (5)
  - Nervous system disorder [Fatal]
  - Gastrointestinal haemorrhage [Unknown]
  - Metastases to central nervous system [Unknown]
  - Drug resistance [Unknown]
  - Metastases to gastrointestinal tract [Unknown]

NARRATIVE: CASE EVENT DATE: 20160115
